FAERS Safety Report 15415311 (Version 1)
Quarter: 2018Q4

REPORT INFORMATION
  Report Type: Spontaneous
  Country: US (occurrence: US)
  Receive Date: 20180921
  Receipt Date: 20180921
  Transmission Date: 20190204
  Serious: Yes (Death, Hospitalization, Other)
  Sender: FDA-Public Use
  Company Number: US-009507513-1809USA009042

PATIENT
  Age: 72 Year
  Sex: Female
  Weight: 71.65 kg

DRUGS (2)
  1. KEYTRUDA [Suspect]
     Active Substance: PEMBROLIZUMAB
     Indication: NON-SMALL CELL LUNG CANCER STAGE IV
     Dosage: 150 MG, Q3W
     Route: 042
     Dates: start: 20170926, end: 20180206
  2. ENOBLITUZUMAB [Suspect]
     Active Substance: ENOBLITUZUMAB
     Indication: NON-SMALL CELL LUNG CANCER STAGE IV
     Dosage: 1077.5 MG WEEKLY
     Route: 042
     Dates: start: 20170926, end: 20180206

REACTIONS (2)
  - Pneumonitis [Recovered/Resolved]
  - Malignant neoplasm progression [Fatal]

NARRATIVE: CASE EVENT DATE: 20180219
